FAERS Safety Report 4592478-8 (Version None)
Quarter: 2005Q1

REPORT INFORMATION
  Report Type: 
  Country: None (occurrence: None)
  Receive Date: 20050222
  Receipt Date: 20050204
  Transmission Date: 20050727
  Serious: Yes (Death)
  Sender: FDA-Public Use
  Company Number: 2005SP000033

PATIENT
  Age: 66 Year
  Sex: Male

DRUGS (1)
  1. XOPENEX [Suspect]
     Indication: DYSPNOEA
     Dosage: INHALATION
     Route: 055
     Dates: start: 20050101, end: 20050101

REACTIONS (1)
  - PULMONARY EMBOLISM [None]
